FAERS Safety Report 4264668-5 (Version None)
Quarter: 2004Q1

REPORT INFORMATION
  Report Type: 
  Country: None (occurrence: None)
  Receive Date: 20040102
  Receipt Date: 20030323
  Transmission Date: 20041129
  Serious: Yes (Hospitalization, Other)
  Sender: FDA-Public Use
  Company Number: KII-2003-0006385

PATIENT
  Age: 21 Year
  Sex: Female

DRUGS (6)
  1. OXYCONTIN [Suspect]
  2. LORTAB [Suspect]
  3. TETRAHYDROCANNABINOL (TETRAHYDROCANNABINOL) [Suspect]
  4. BARBITURATES () [Suspect]
  5. ACETAMINOPHEN [Suspect]
  6. ACETYLSALICYLIC ACID SRT [Suspect]

REACTIONS (13)
  - BODY TEMPERATURE INCREASED [None]
  - COMA [None]
  - CRACKLES LUNG [None]
  - DRUG SCREEN POSITIVE [None]
  - LETHARGY [None]
  - MULTIPLE DRUG OVERDOSE [None]
  - PNEUMONIA [None]
  - RESPIRATORY DEPRESSION [None]
  - RHONCHI [None]
  - SINUS TACHYCARDIA [None]
  - SNORING [None]
  - SPUTUM DISCOLOURED [None]
  - URINE OSMOLARITY INCREASED [None]
